FAERS Safety Report 4831130-8 (Version None)
Quarter: 2005Q4

REPORT INFORMATION
  Report Type: 
  Country: None (occurrence: None)
  Receive Date: 20051116
  Receipt Date: 20051116
  Transmission Date: 20060501
  Serious: Yes (Other)
  Sender: FDA-Public Use
  Company Number: None

PATIENT
  Age: 55 Year
  Sex: Female
  Weight: 60.3284 kg

DRUGS (3)
  1. METHOTREXATE [Suspect]
     Dosage: WEEKLY 25 MG
     Dates: end: 20051019
  2. HUMIRA [Concomitant]
  3. PREDNISONE [Concomitant]

REACTIONS (5)
  - DRUG INEFFECTIVE [None]
  - INFUSION SITE PAIN [None]
  - INJECTION SITE INFECTION [None]
  - PURULENCE [None]
  - SKIN LESION [None]
